FAERS Safety Report 11661010 (Version 1)
Quarter: 2015Q4

REPORT INFORMATION
  Report Type: Spontaneous
  Country: US (occurrence: US)
  Receive Date: 20151026
  Receipt Date: 20151026
  Transmission Date: 20160304
  Serious: Yes (Other)
  Sender: FDA-Public Use
  Company Number: US-BAYER-2015-447279

PATIENT
  Sex: Female

DRUGS (2)
  1. CIPRO [Suspect]
     Active Substance: CIPROFLOXACIN HYDROCHLORIDE
     Indication: GASTRIC DISORDER
     Dosage: UNK
     Dates: start: 1996
  2. LEVAQUIN [Concomitant]
     Active Substance: LEVOFLOXACIN
     Indication: SINUSITIS

REACTIONS (16)
  - Neuropathy peripheral [None]
  - Myalgia [Recovering/Resolving]
  - Confusional state [None]
  - Paraesthesia [None]
  - Insomnia [Recovering/Resolving]
  - Initial insomnia [Recovering/Resolving]
  - Flatulence [None]
  - Burning sensation [None]
  - Pain in extremity [None]
  - Eructation [None]
  - Tendon pain [Recovering/Resolving]
  - Muscular weakness [None]
  - Activities of daily living impaired [None]
  - Maternal exposure before pregnancy [None]
  - Amnesia [None]
  - Carpal tunnel syndrome [None]
